FAERS Safety Report 21418686 (Version 2)
Quarter: 2022Q4

REPORT INFORMATION
  Report Type: Spontaneous
  Country: US (occurrence: US)
  Receive Date: 20221006
  Receipt Date: 20221021
  Transmission Date: 20230113
  Serious: Yes (Hospitalization)
  Sender: FDA-Public Use
  Company Number: US-TEVA-2022-US-2078736

PATIENT
  Age: 15 Year
  Sex: Female
  Weight: 41.1 kg

DRUGS (2)
  1. WARFARIN [Suspect]
     Active Substance: WARFARIN
     Indication: Suicide attempt
     Dosage: INGESTED 20 TO 40 (TOTALING 100 TO 200MG) OF WARFARIN 5MG TABLET
     Route: 048
  2. SERTRALINE [Concomitant]
     Active Substance: SERTRALINE HYDROCHLORIDE
     Indication: Depression
     Route: 065

REACTIONS (4)
  - Haematoma [Recovered/Resolved]
  - International normalised ratio increased [Recovered/Resolved]
  - Overdose [Unknown]
  - Intentional product misuse [Unknown]
